FAERS Safety Report 6265113-0 (Version None)
Quarter: 2009Q3

REPORT INFORMATION
  Report Type: 
  Country: None (occurrence: None)
  Receive Date: 20090713
  Receipt Date: 20080820
  Transmission Date: 20100115
  Serious: No
  Sender: FDA-Public Use
  Company Number: US-TYCO HEALTHCARE/MALLINCKRODT-T200801373

PATIENT

DRUGS (1)
  1. MORPHINE [Suspect]

REACTIONS (1)
  - DRUG INTOLERANCE [None]
